FAERS Safety Report 11895583 (Version 1)
Quarter: 2016Q1

REPORT INFORMATION
  Report Type: Spontaneous
  Country: US (occurrence: US)
  Receive Date: 20160107
  Receipt Date: 20160107
  Transmission Date: 20160526
  Serious: Yes (Hospitalization, Other)
  Sender: FDA-Public Use
  Company Number: US-MEDTRONIC-1046247

PATIENT
  Age: 54 Year
  Sex: Male
  Weight: 110 kg

DRUGS (17)
  1. LIORESAL [Suspect]
     Active Substance: BACLOFEN
     Indication: MUSCLE SPASTICITY
     Route: 037
  2. LISINOPRIL. [Suspect]
     Active Substance: LISINOPRIL
     Route: 048
  3. PNEUMOVAX 23 [Suspect]
     Active Substance: PNEUMOCOCCAL VACCINE, POLYVALENT 23
     Dates: start: 20111220
  4. COLACE [Suspect]
     Active Substance: DOCUSATE SODIUM
     Route: 048
  5. PANTOPRAZOLE [Suspect]
     Active Substance: PANTOPRAZOLE SODIUM
     Route: 048
  6. ASPIRIN. [Suspect]
     Active Substance: ASPIRIN
     Route: 048
  7. OXYBUTYNIN CHLORIDE EXTENDED RELEASE [Suspect]
     Active Substance: OXYBUTYNIN CHLORIDE
     Route: 048
  8. CALCIUM CARBONATE. [Suspect]
     Active Substance: CALCIUM CARBONATE
     Route: 048
  9. COMBIVENT [Suspect]
     Active Substance: ALBUTEROL SULFATE\IPRATROPIUM BROMIDE
     Route: 055
  10. GABAPENTIN. [Suspect]
     Active Substance: GABAPENTIN
     Route: 048
  11. BUPROPION HYDROCHLORIDE. [Suspect]
     Active Substance: BUPROPION HYDROCHLORIDE
     Route: 048
  12. CALMOSEPTINE [Suspect]
     Active Substance: MENTHOL\ZINC OXIDE
     Route: 061
  13. ATORVASTATIN CALCIUM. [Suspect]
     Active Substance: ATORVASTATIN CALCIUM
     Route: 048
  14. NOVOLOG [Suspect]
     Active Substance: INSULIN ASPART
     Route: 058
  15. FLUVIRIN 2011/2012 [Suspect]
     Active Substance: INFLUENZA A VIRUS A/CHRISTCHURCH/16/2010 NIB-74 (H1N1) ANTIGEN (PROPIOLACTONE INACTIVATED)\INFLUENZA A VIRUS A/VICTORIA/210/2009 X-187 (H3N2) ANTIGEN (PROPIOLACTONE INACTIVATED)\INFLUENZA B VIRUS B/BRISBANE/60/2008 ANTIGEN (PROPIOLACTONE INACTIVATED)\INFLUENZA VIRUS VACCINE
     Dates: start: 20131212
  16. LORAZEPAM. [Suspect]
     Active Substance: LORAZEPAM
     Route: 048
     Dates: start: 20151203
  17. FLUZONE [Suspect]
     Active Substance: INFLUENZA A VIRUS A/CALIFORNIA/7/2009 X-179A (H1N1) ANTIGEN (FORMALDEHYDE INACTIVATED)\INFLUENZA A VIRUS A/VICTORIA/210/2009 X-187 (H3N2) ANTIGEN (FORMALDEHYDE INACTIVATED)\INFLUENZA B VIRUS B/BRISBANE/60/2008 ANTIGEN (FORMALDEHYDE INACTIVATED)
     Dates: start: 20150921

REACTIONS (12)
  - Dizziness postural [Unknown]
  - Decubitus ulcer [Unknown]
  - Scrotal ulcer [Unknown]
  - Skin lesion [Unknown]
  - Lung neoplasm malignant [Unknown]
  - Anxiety [Unknown]
  - Hyperhidrosis [Unknown]
  - Excessive granulation tissue [Unknown]
  - Hypoalbuminaemia [Unknown]
  - Social avoidant behaviour [Unknown]
  - Dyspnoea [Unknown]
  - Muscle spasticity [Unknown]

NARRATIVE: CASE EVENT DATE: 20090101
